FAERS Safety Report 21451426 (Version 1)
Quarter: 2022Q4

REPORT INFORMATION
  Report Type: Spontaneous
  Country: US (occurrence: US)
  Receive Date: 20221013
  Receipt Date: 20221013
  Transmission Date: 20230113
  Serious: Yes (Life-Threatening, Hospitalization, Other)
  Sender: FDA-Public Use
  Company Number: US-INDIVIOR EUROPE LIMITED-INDV-134357-2022

PATIENT
  Age: 33 Year
  Sex: Female

DRUGS (22)
  1. SUBLOCADE [Suspect]
     Active Substance: BUPRENORPHINE
     Indication: Product used for unknown indication
     Dosage: 100 MILLIGRAM, QMO (RIGHT UPPER QUADRANT)
     Route: 065
     Dates: start: 20211008
  2. SUBLOCADE [Suspect]
     Active Substance: BUPRENORPHINE
     Dosage: 100 MILLIGRAM, QMO (RIGHT LOWER QUADRANT)
     Route: 065
     Dates: start: 20211109
  3. SUBLOCADE [Suspect]
     Active Substance: BUPRENORPHINE
     Dosage: 100 MILLIGRAM, QMO (LEFT UPPER QUADRANT))
     Route: 065
     Dates: start: 20211209
  4. SUBLOCADE [Suspect]
     Active Substance: BUPRENORPHINE
     Dosage: 100 MILLIGRAM, QMO (RIGHT UPPER QUADRANT)
     Route: 065
     Dates: start: 20220107
  5. SUBLOCADE [Suspect]
     Active Substance: BUPRENORPHINE
     Dosage: 100 MILLIGRAM, QMO (LEFT UPPER QUADRANT)
     Route: 065
     Dates: start: 20220207
  6. SUBLOCADE [Suspect]
     Active Substance: BUPRENORPHINE
     Dosage: 100 MILLIGRAM, QMO (RIGHT UPPER QUADRANT)
     Route: 065
     Dates: start: 20220309
  7. SUBLOCADE [Suspect]
     Active Substance: BUPRENORPHINE
     Indication: Product used for unknown indication
     Dosage: 300 MILLIGRAM, QMO (RIGHT UPPER QUADRANT)
     Route: 065
     Dates: start: 20200806
  8. SUBLOCADE [Suspect]
     Active Substance: BUPRENORPHINE
     Dosage: 300 MILLIGRAM, QMO (LEFT UPPER QUADRANT)
     Route: 065
     Dates: start: 20200827
  9. SUBLOCADE [Suspect]
     Active Substance: BUPRENORPHINE
     Dosage: 300 MILLIGRAM, QMO (RIGHT LOWER QUADRANT)
     Route: 065
     Dates: start: 20200925
  10. SUBLOCADE [Suspect]
     Active Substance: BUPRENORPHINE
     Dosage: 300 MILLIGRAM, QMO (RIGHT LOWER QUADRANT)
     Route: 065
     Dates: start: 20201023
  11. SUBLOCADE [Suspect]
     Active Substance: BUPRENORPHINE
     Dosage: 300 MILLIGRAM, QMO (LEFT LOWER QUADRANT)
     Route: 065
     Dates: start: 20201115
  12. SUBLOCADE [Suspect]
     Active Substance: BUPRENORPHINE
     Dosage: 300 MILLIGRAM, QMO (RIGHT UPPER QUADRANT)
     Route: 065
     Dates: start: 20201210
  13. SUBLOCADE [Suspect]
     Active Substance: BUPRENORPHINE
     Dosage: 300 MILLIGRAM, QMO (RIGHT LOWER QUADRANT)
     Route: 065
     Dates: start: 20210125
  14. SUBLOCADE [Suspect]
     Active Substance: BUPRENORPHINE
     Dosage: 300 MILLIGRAM, QMO (RIGHT UPPER QUADRANT)
     Route: 065
     Dates: start: 20210224
  15. SUBLOCADE [Suspect]
     Active Substance: BUPRENORPHINE
     Dosage: 300 MILLIGRAM, QMO (LEFT UPPER QUADRANT)
     Route: 065
     Dates: start: 20210324
  16. SUBLOCADE [Suspect]
     Active Substance: BUPRENORPHINE
     Dosage: 300 MILLIGRAM, QMO (RIGHT LOWER QUADRANT)
     Route: 065
     Dates: start: 20210426
  17. SUBLOCADE [Suspect]
     Active Substance: BUPRENORPHINE
     Dosage: 300 MILLIGRAM, QMO (RIGHT UPPER QUADRANT)
     Route: 065
     Dates: start: 20210526
  18. SUBLOCADE [Suspect]
     Active Substance: BUPRENORPHINE
     Dosage: 300 MILLIGRAM, QMO (LEFT LOWER QUADRANT)
     Route: 065
     Dates: start: 20210705
  19. SUBLOCADE [Suspect]
     Active Substance: BUPRENORPHINE
     Dosage: 300 MILLIGRAM, QMO (RIGHT LOWER QUADRANT)
     Route: 065
     Dates: start: 20210813
  20. SUBLOCADE [Suspect]
     Active Substance: BUPRENORPHINE
     Dosage: 300 MILLIGRAM, QMO (RIGHT UPPER QUADRANT)
     Route: 065
     Dates: start: 20210910
  21. SUBLOCADE [Suspect]
     Active Substance: BUPRENORPHINE
     Dosage: 300 MILLIGRAM, QMO (RIGHT UPPER QUADRANT)
     Route: 065
     Dates: start: 20220512
  22. FENTANYL [Suspect]
     Active Substance: FENTANYL
     Indication: Product used for unknown indication
     Dosage: UNK
     Route: 065
     Dates: start: 202204

REACTIONS (5)
  - Overdose [Unknown]
  - Toxicity to various agents [Unknown]
  - Drug detoxification [Unknown]
  - Inappropriate schedule of product administration [Recovered/Resolved]
  - Product dose omission issue [Recovered/Resolved]

NARRATIVE: CASE EVENT DATE: 20200827
